FAERS Safety Report 9449308 (Version 2)
Quarter: 2013Q3

REPORT INFORMATION
  Report Type: Spontaneous
  Country: US (occurrence: US)
  Receive Date: 20130808
  Receipt Date: 20130813
  Transmission Date: 20140515
  Serious: Yes (Death)
  Sender: FDA-Public Use
  Company Number: US-GILEAD-2013-0080984

PATIENT
  Sex: Male

DRUGS (3)
  1. LETAIRIS [Suspect]
     Indication: PULMONARY HYPERTENSION
     Dosage: 5 MG, QD
     Route: 048
     Dates: start: 20130702, end: 20130708
  2. LETAIRIS [Suspect]
     Indication: RESTRICTIVE PULMONARY DISEASE
  3. LETAIRIS [Suspect]
     Indication: ASBESTOSIS

REACTIONS (3)
  - Respiratory failure [Fatal]
  - Pulmonary hypertension [Fatal]
  - Aortic stenosis [Fatal]
